FAERS Safety Report 14081196 (Version 1)
Quarter: 2017Q4

REPORT INFORMATION
  Report Type: Spontaneous
  Country: US (occurrence: US)
  Receive Date: 20171012
  Receipt Date: 20171012
  Transmission Date: 20180321
  Serious: Yes (Other)
  Sender: FDA-Public Use
  Company Number: None

PATIENT
  Age: 73 Year
  Sex: Male
  Weight: 68.4 kg

DRUGS (2)
  1. CHLORHEXIDENE SCRUB [Suspect]
     Active Substance: CHLORHEXIDINE
     Indication: PREOPERATIVE CARE
  2. ALL CHLORHEXIDINE PRODUCTS [Concomitant]

REACTIONS (3)
  - Anaphylactic reaction [None]
  - Eczema [None]
  - Dermatitis allergic [None]

NARRATIVE: CASE EVENT DATE: 20171001
